FAERS Safety Report 22049357 (Version 1)
Quarter: 2023Q1

REPORT INFORMATION
  Report Type: Spontaneous
  Country: US (occurrence: US)
  Receive Date: 20230301
  Receipt Date: 20230301
  Transmission Date: 20230417
  Serious: Yes (Other)
  Sender: FDA-Public Use
  Company Number: US-AZURITY PHARMACEUTICALS, INC.-US-2023ARB000346

PATIENT
  Sex: Male

DRUGS (12)
  1. BACLOFEN [Suspect]
     Active Substance: BACLOFEN
     Indication: Drug withdrawal syndrome
     Dosage: 10 MG, TID
  2. BACLOFEN [Suspect]
     Active Substance: BACLOFEN
     Dosage: 20 MG, TID
  3. BACLOFEN [Suspect]
     Active Substance: BACLOFEN
     Dosage: 70 MG
     Route: 048
  4. BACLOFEN [Suspect]
     Active Substance: BACLOFEN
     Dosage: 40 MG, TID, WITH A PLAN TO TAPER 5MG DAILY EACH WEEK
  5. NALTREXONE [Concomitant]
     Active Substance: NALTREXONE
     Indication: Product used for unknown indication
     Dosage: 25 MG, TID
  6. TRAZODONE [Concomitant]
     Active Substance: TRAZODONE HYDROCHLORIDE
     Indication: Product used for unknown indication
     Dosage: 300 MG, NIGHTLY
  7. GABAPENTIN [Concomitant]
     Active Substance: GABAPENTIN
     Indication: Product used for unknown indication
     Dosage: 600 MG, TID
  8. CLONIDINE [Concomitant]
     Active Substance: CLONIDINE
     Indication: Product used for unknown indication
     Dosage: 0.1 MG, BID
  9. CITALOPRAM [Concomitant]
     Active Substance: CITALOPRAM HYDROBROMIDE
     Indication: Product used for unknown indication
     Dosage: 60 MG, DAILY
  10. BUSPIRONE [Concomitant]
     Active Substance: BUSPIRONE HYDROCHLORIDE
     Indication: Product used for unknown indication
     Dosage: 30 MG, BID
  11. LORAZEPAM [Concomitant]
     Active Substance: LORAZEPAM
     Indication: Drug withdrawal syndrome
     Dosage: 1 MG
     Route: 042
  12. LORAZEPAM [Concomitant]
     Active Substance: LORAZEPAM
     Dosage: 7 MG, OVER SIX HOURS
     Route: 042

REACTIONS (2)
  - Generalised tonic-clonic seizure [Unknown]
  - Underdose [Unknown]
